FAERS Safety Report 16461468 (Version 1)
Quarter: 2019Q2

REPORT INFORMATION
  Report Type: Spontaneous
  Country: GB (occurrence: GB)
  Receive Date: 20190621
  Receipt Date: 20190621
  Transmission Date: 20190711
  Serious: Yes (Hospitalization)
  Sender: FDA-Public Use
  Company Number: GB-TEVA-2019-GB-1066713

PATIENT
  Age: 62 Year
  Sex: Male
  Weight: 78.65 kg

DRUGS (20)
  1. PARACETAMOL [Concomitant]
     Active Substance: ACETAMINOPHEN
  2. ORAMORPH [Concomitant]
     Active Substance: MORPHINE SULFATE
  3. METRONIDAZOLE. [Concomitant]
     Active Substance: METRONIDAZOLE
  4. GABAPENTIN. [Suspect]
     Active Substance: GABAPENTIN
     Indication: PAIN
     Dosage: 900 MILLIGRAM DAILY;
     Route: 048
     Dates: start: 20190509
  5. TAZOCIN [Concomitant]
     Active Substance: PIPERACILLIN SODIUM\TAZOBACTAM SODIUM
  6. GENTAMICIN. [Concomitant]
     Active Substance: GENTAMICIN
  7. ATORVASTATIN [Concomitant]
     Active Substance: ATORVASTATIN
  8. LACTULOSE. [Concomitant]
     Active Substance: LACTULOSE
  9. FLUCLOXACILLIN [Concomitant]
     Active Substance: FLUCLOXACILLIN
  10. NOVORAPID [Concomitant]
     Active Substance: INSULIN ASPART
  11. OMEPRAZOLE. [Concomitant]
     Active Substance: OMEPRAZOLE
  12. LANTUS [Concomitant]
     Active Substance: INSULIN GLARGINE
  13. NAPROXEN. [Concomitant]
     Active Substance: NAPROXEN
  14. AMOXICILLIN. [Concomitant]
     Active Substance: AMOXICILLIN
  15. CLOPIDOGREL [Concomitant]
     Active Substance: CLOPIDOGREL BISULFATE
  16. CODEINE [Concomitant]
     Active Substance: CODEINE
  17. TEICOPLANIN [Concomitant]
     Active Substance: TEICOPLANIN
  18. COCODAMOL [Concomitant]
     Active Substance: ACETAMINOPHEN\CODEINE PHOSPHATE
  19. MST CONTINUS [Concomitant]
     Active Substance: MORPHINE SULFATE
  20. ENOXAPARIN [Concomitant]
     Active Substance: ENOXAPARIN

REACTIONS (2)
  - Erythema multiforme [Not Recovered/Not Resolved]
  - Pruritus [Not Recovered/Not Resolved]

NARRATIVE: CASE EVENT DATE: 20190514
